FAERS Safety Report 4604339-6 (Version None)
Quarter: 2005Q1

REPORT INFORMATION
  Report Type: 
  Country: None (occurrence: None)
  Receive Date: 20050308
  Receipt Date: 20050304
  Transmission Date: 20050727
  Serious: Yes (Hospitalization)
  Sender: FDA-Public Use
  Company Number: 05-NIP00025

PATIENT
  Age: 35 Year
  Sex: Male
  Weight: 75.5 kg

DRUGS (12)
  1. NIPENT [Suspect]
     Indication: GRAFT VERSUS HOST DISEASE
  2. SPORANOX [Concomitant]
  3. FLAGYL [Concomitant]
  4. PAXIL [Concomitant]
  5. INFLIXIMAB [Concomitant]
  6. PROGRAF [Concomitant]
  7. PROTONIX [Concomitant]
  8. VITAMIN K [Concomitant]
  9. ALUMINUM HYDROXIDE AND MAGNESIUM TRISILICATE [Concomitant]
  10. XANAX [Concomitant]
  11. IMODIUM [Concomitant]
  12. OXYCODONE HCL [Concomitant]

REACTIONS (1)
  - CLOSTRIDIUM COLITIS [None]
